FAERS Safety Report 21335579 (Version 3)
Quarter: 2022Q4

REPORT INFORMATION
  Report Type: Spontaneous
  Country: NZ (occurrence: NZ)
  Receive Date: 20220915
  Receipt Date: 20221108
  Transmission Date: 20230113
  Serious: Yes (Death, Hospitalization, Other)
  Sender: FDA-Public Use
  Company Number: NZ-BEIGENE AUS PTY LTD-BGN-2022-007773

PATIENT
  Age: 64 Year
  Sex: Male
  Weight: 124 kg

DRUGS (26)
  1. AZACITIDINE [Suspect]
     Active Substance: AZACITIDINE
     Indication: Myelodysplastic syndrome
     Dosage: 185 MILLIGRAM, QD
     Route: 042
     Dates: start: 20220627
  2. AZACITIDINE [Suspect]
     Active Substance: AZACITIDINE
     Dosage: 185 MILLIGRAM, QD
     Route: 042
     Dates: start: 20220705
  3. BGB-11417 [Suspect]
     Active Substance: BGB-11417
     Indication: Myelodysplastic syndrome
     Dosage: 10 MILLIGRAM, QD
     Route: 048
     Dates: start: 20220627
  4. BGB-11417 [Suspect]
     Active Substance: BGB-11417
     Dosage: 80 MILLIGRAM, QD
     Route: 048
     Dates: start: 20220701
  5. TRANEXAMIC ACID [Concomitant]
     Active Substance: TRANEXAMIC ACID
     Indication: Epistaxis
     Dosage: UNK
     Route: 048
     Dates: start: 20220623, end: 20220809
  6. METOPROLOL [Concomitant]
     Active Substance: METOPROLOL
     Indication: Atrial fibrillation
     Dosage: UNK
     Route: 048
     Dates: start: 20111026, end: 20220809
  7. METOPROLOL [Concomitant]
     Active Substance: METOPROLOL
     Indication: Acute myocardial infarction
  8. ALLOPURINOL [Concomitant]
     Active Substance: ALLOPURINOL
     Indication: Prophylaxis
     Dosage: UNK
     Route: 048
     Dates: start: 20220627, end: 20220630
  9. HYDROCORTISONE [Concomitant]
     Active Substance: HYDROCORTISONE
     Indication: Rash
     Dosage: UNK
     Route: 061
     Dates: start: 20220630, end: 202207
  10. METOCLOPRAMIDE [Concomitant]
     Active Substance: METOCLOPRAMIDE
     Indication: Prophylaxis of nausea and vomiting
     Dosage: UNK
     Route: 048
     Dates: start: 20220627, end: 20220809
  11. ONDANSETRON [Concomitant]
     Active Substance: ONDANSETRON
     Indication: Prophylaxis of nausea and vomiting
     Dosage: UNK
     Route: 048
     Dates: start: 20220627, end: 20220809
  12. FUROSEMIDE [Concomitant]
     Active Substance: FUROSEMIDE
     Indication: Cardiac failure congestive
     Dosage: UNK
     Route: 048
     Dates: start: 20180215
  13. FAMOTIDINE [Concomitant]
     Active Substance: FAMOTIDINE
     Indication: Gastrooesophageal reflux disease
     Dosage: UNK
     Route: 048
     Dates: start: 20220217
  14. TRAMADOL [Concomitant]
     Active Substance: TRAMADOL
     Indication: Neuralgia
     Dosage: UNK
     Route: 048
     Dates: start: 20220517
  15. PANTOPRAZOLE [Concomitant]
     Active Substance: PANTOPRAZOLE
     Indication: Gastrooesophageal reflux disease
     Dosage: UNK
     Route: 048
     Dates: start: 202111
  16. PANTOPRAZOLE [Concomitant]
     Active Substance: PANTOPRAZOLE
     Indication: Gastrooesophageal reflux disease
  17. PANTOPRAZOLE [Concomitant]
     Active Substance: PANTOPRAZOLE
     Indication: Gastrooesophageal reflux prophylaxis
  18. CETIRIZINE HYDROCHLORIDE [Concomitant]
     Active Substance: CETIRIZINE HYDROCHLORIDE
     Indication: Rash
     Dosage: UNK
     Route: 048
     Dates: start: 20220630
  19. HEALTHE FATTY CREAM [Concomitant]
     Indication: Rash
     Dosage: UNK
     Route: 061
     Dates: start: 20220630
  20. MAGNESIUM SULFATE ANHYDROUS [Concomitant]
     Active Substance: MAGNESIUM SULFATE ANHYDROUS
     Indication: Hypomagnesaemia
     Dosage: UNK
     Route: 042
     Dates: start: 20220630, end: 20220630
  21. ATORVASTATIN CALCIUM [Concomitant]
     Active Substance: ATORVASTATIN CALCIUM
     Indication: Dyslipidaemia
     Dosage: UNK
     Route: 048
     Dates: start: 20111026
  22. ATORVASTATIN CALCIUM [Concomitant]
     Active Substance: ATORVASTATIN CALCIUM
     Indication: Acute myocardial infarction
  23. CODEINE PHOSPHATE [Concomitant]
     Active Substance: CODEINE PHOSPHATE
     Indication: Neuralgia
     Dosage: UNK
     Route: 048
     Dates: start: 20220503
  24. ACETAMINOPHEN [Concomitant]
     Active Substance: ACETAMINOPHEN
     Indication: Osteoarthritis
     Dosage: UNK
     Route: 048
     Dates: start: 20140818
  25. MINERAL OIL [Concomitant]
     Active Substance: MINERAL OIL
     Indication: Rash
     Dosage: UNK
     Route: 048
     Dates: start: 20220630, end: 202207
  26. PARAFFIN [Concomitant]
     Active Substance: PARAFFIN
     Indication: Rash
     Dosage: UNK
     Route: 048
     Dates: start: 20220630, end: 202207

REACTIONS (3)
  - Arthritis bacterial [Fatal]
  - Paronychia [Recovered/Resolved]
  - Bacterial infection [Unknown]

NARRATIVE: CASE EVENT DATE: 20220715
